FAERS Safety Report 7651223-X (Version None)
Quarter: 2011Q3

REPORT INFORMATION
  Report Type: 
  Country: None (occurrence: None)
  Receive Date: 20110727
  Receipt Date: 20110711
  Transmission Date: 20111222
  Serious: Yes (Life-Threatening, Hospitalization)
  Sender: FDA-Public Use
  Company Number: 2011MA008596

PATIENT
  Age: 20 Year
  Sex: Female

DRUGS (5)
  1. PRIDOXINE (PYRIDOXINE) [Suspect]
     Indication: PULMONARY TUBERCULOSIS
  2. RIFAMPIN [Suspect]
     Indication: PULMONARY TUBERCULOSIS
  3. PYRAZINAMIDE [Suspect]
     Indication: PULMONARY TUBERCULOSIS
  4. ISONIAZID [Suspect]
     Indication: PULMONARY TUBERCULOSIS
  5. ETHAMBUTOL (ETHANBUTOL) [Suspect]
     Indication: PULMONARY TUBERCULOSIS

REACTIONS (8)
  - HAEMODIALYSIS [None]
  - RENAL FAILURE ACUTE [None]
  - POLLAKIURIA [None]
  - DYSURIA [None]
  - CATHETER SITE HAEMORRHAGE [None]
  - ABDOMINAL PAIN [None]
  - DISSEMINATED INTRAVASCULAR COAGULATION [None]
  - DIARRHOEA [None]
